FAERS Safety Report 7554833-3 (Version None)
Quarter: 2011Q2

REPORT INFORMATION
  Report Type: 
  Country: None (occurrence: None)
  Receive Date: 20110617
  Receipt Date: 20110609
  Transmission Date: 20111010
  Serious: Yes (Hospitalization)
  Sender: FDA-Public Use
  Company Number: US-MERCK-1106USA01320

PATIENT
  Age: 85 Year
  Sex: Male

DRUGS (1)
  1. VYTORIN [Suspect]
     Indication: BLOOD CHOLESTEROL DECREASED
     Dosage: 1 STANDARD PACKAGE BOTTLE OF 30
     Route: 048

REACTIONS (2)
  - RHABDOMYOLYSIS [None]
  - DEHYDRATION [None]
